FAERS Safety Report 24299605 (Version 2)
Quarter: 2024Q3

REPORT INFORMATION
  Report Type: Report from Study
  Country: CA (occurrence: CA)
  Receive Date: 20240909
  Receipt Date: 20240928
  Transmission Date: 20241016
  Serious: Yes (Hospitalization, Other)
  Sender: JOHNSON AND JOHNSON
  Company Number: CA-JNJFOC-20240845100

PATIENT
  Age: 72 Year
  Sex: Female

DRUGS (2)
  1. STELARA [Suspect]
     Active Substance: USTEKINUMAB
     Indication: Crohn^s disease
     Route: 058
  2. STELARA [Suspect]
     Active Substance: USTEKINUMAB
     Indication: Colitis ulcerative
     Dosage: DATE OF TREATMENT: 19-SEP-2024
     Route: 058
     Dates: start: 20231229

REACTIONS (5)
  - Urinary tract infection [Recovered/Resolved]
  - Intestinal haemorrhage [Unknown]
  - Multiple sclerosis [Unknown]
  - Therapeutic product effect decreased [Not Recovered/Not Resolved]
  - Constipation [Unknown]

NARRATIVE: CASE EVENT DATE: 20231229
